FAERS Safety Report 5747031-7 (Version None)
Quarter: 2008Q2

REPORT INFORMATION
  Report Type: 
  Country: None (occurrence: None)
  Receive Date: 20080520
  Receipt Date: 20080514
  Transmission Date: 20081010
  Serious: Yes (Hospitalization, Other)
  Sender: FDA-Public Use
  Company Number: 2008SP005698

PATIENT
  Age: 65 Year
  Sex: Female

DRUGS (2)
  1. PEG-INTRON [Suspect]
     Indication: HEPATITIS C
     Dosage: SC
     Route: 058
     Dates: start: 20080121
  2. RIBAVIRIN [Suspect]
     Indication: HEPATITIS C
     Dosage: PO
     Route: 048
     Dates: start: 20080121

REACTIONS (12)
  - ANAEMIA [None]
  - CONDITION AGGRAVATED [None]
  - DIZZINESS [None]
  - DYSPNOEA [None]
  - HAEMORRHOIDS [None]
  - NAUSEA [None]
  - ORAL INTAKE REDUCED [None]
  - PALPITATIONS [None]
  - RECTAL HAEMORRHAGE [None]
  - SKIN INJURY [None]
  - URINARY TRACT INFECTION [None]
  - VISION BLURRED [None]
